FAERS Safety Report 9518919 (Version 1)
Quarter: 2013Q3

REPORT INFORMATION
  Report Type: Spontaneous
  Country: US (occurrence: None)
  Receive Date: 20130910
  Receipt Date: 20130910
  Transmission Date: 20140515
  Serious: Yes (Other)
  Sender: FDA-Public Use
  Company Number: ADE13-023

PATIENT
  Age: 60 Year
  Sex: Female
  Weight: 115.9 kg

DRUGS (2)
  1. HEPARIN SODIUM [Suspect]
     Indication: CATHETERISATION CARDIAC
     Route: 042
     Dates: start: 20130822, end: 20130822
  2. EPTIFIBATIDE [Concomitant]

REACTIONS (1)
  - Drug effect decreased [None]
